FAERS Safety Report 8137660-8 (Version None)
Quarter: 2012Q1

REPORT INFORMATION
  Report Type: 
  Country: None (occurrence: None)
  Receive Date: 20120215
  Receipt Date: 20120208
  Transmission Date: 20120608
  Serious: No
  Sender: FDA-Public Use
  Company Number: US-PFIZER INC-2012035645

PATIENT

DRUGS (1)
  1. ZYVOX [Suspect]
     Dosage: UNK
     Route: 048

REACTIONS (1)
  - DYSGEUSIA [None]
